FAERS Safety Report 4811505-3 (Version None)
Quarter: 2005Q4

REPORT INFORMATION
  Report Type: 
  Country: None (occurrence: None)
  Receive Date: 20051027
  Receipt Date: 20051017
  Transmission Date: 20060501
  Serious: Yes (Death)
  Sender: FDA-Public Use
  Company Number: NO-ABBOTT-05P-122-0314481-00

PATIENT
  Sex: Male

DRUGS (9)
  1. BIAXIN [Suspect]
     Indication: DUODENAL ULCER
     Route: 048
     Dates: start: 20050818, end: 20050825
  2. ESOMEPRAZOLE [Suspect]
     Indication: DUODENAL ULCER
     Route: 048
     Dates: start: 20050818, end: 20050829
  3. ESOMEPRAZOLE [Suspect]
     Route: 048
     Dates: start: 20050830, end: 20050922
  4. ACETAMINOPHEN [Concomitant]
     Indication: DRUG USE FOR UNKNOWN INDICATION
  5. ISOSORBIDE MONONITRATE [Concomitant]
     Indication: MYOCARDIAL INFARCTION
     Route: 048
     Dates: start: 20050804, end: 20050922
  6. LACTULOSE [Concomitant]
     Indication: CONSTIPATION
     Route: 048
     Dates: start: 20050829, end: 20050922
  7. METRONIDAZOLE [Concomitant]
     Indication: DUODENAL ULCER
     Route: 048
     Dates: start: 20050818, end: 20050825
  8. GLYCEROL TRINITRATE [Concomitant]
     Indication: DRUG USE FOR UNKNOWN INDICATION
     Route: 060
  9. METOPROLOL [Concomitant]
     Indication: ATRIAL FIBRILLATION
     Route: 048
     Dates: start: 20050805, end: 20050922

REACTIONS (5)
  - ERYTHEMA MULTIFORME [None]
  - GENERAL NUTRITION DISORDER [None]
  - GENERAL PHYSICAL HEALTH DETERIORATION [None]
  - PNEUMONIA [None]
  - RENAL FAILURE [None]
